FAERS Safety Report 14119771 (Version 3)
Quarter: 2018Q1

REPORT INFORMATION
  Report Type: Spontaneous
  Country: DE (occurrence: DE)
  Receive Date: 20171024
  Receipt Date: 20180321
  Transmission Date: 20180508
  Serious: Yes (Life-Threatening, Hospitalization, Disabling)
  Sender: FDA-Public Use
  Company Number: GXKR2017DE005101

PATIENT
  Age: 68 Year
  Sex: Male
  Weight: 105 kg

DRUGS (6)
  1. BISOPROLOL [Concomitant]
     Active Substance: BISOPROLOL
     Indication: PRODUCT USED FOR UNKNOWN INDICATION
     Dosage: 1.25 MG, UNK
     Route: 065
  2. BISOPROLOL 1A PHARMA [Suspect]
     Active Substance: BISOPROLOL
     Indication: EXTRASYSTOLES
  3. TRIMIPRAMINE [Suspect]
     Active Substance: TRIMIPRAMINE
     Indication: PANIC ATTACK
     Dosage: UNK
     Route: 048
     Dates: start: 201610
  4. BISOPROLOL 1A PHARMA [Suspect]
     Active Substance: BISOPROLOL
     Indication: HYPERTENSION
     Dosage: 1 DF, QD
     Route: 048
     Dates: start: 20160922, end: 20160930
  5. VOTUM [Concomitant]
     Active Substance: OLMESARTAN MEDOXOMIL
     Dosage: DAILY DOSE: 1 DF DOSAGE FORM EVERY DAY
  6. VOTUM [Concomitant]
     Active Substance: OLMESARTAN MEDOXOMIL
     Indication: HYPERTENSION
     Dosage: 1 DF, QD
     Route: 065

REACTIONS (5)
  - Panic attack [Recovered/Resolved]
  - Nervousness [Not Recovered/Not Resolved]
  - Product quality issue [Unknown]
  - Arrhythmia [Recovered/Resolved]
  - Restlessness [Recovered/Resolved]

NARRATIVE: CASE EVENT DATE: 20160925
